FAERS Safety Report 5711763-7 (Version None)
Quarter: 2008Q2

REPORT INFORMATION
  Report Type: 
  Country: None (occurrence: None)
  Receive Date: 20080421
  Receipt Date: 20080409
  Transmission Date: 20081010
  Serious: Yes (Life-Threatening, Hospitalization, Other)
  Sender: FDA-Public Use
  Company Number: DE-PFIZER INC-2008018890

PATIENT
  Sex: Male
  Weight: 75 kg

DRUGS (1)
  1. CHAMPIX [Suspect]
     Indication: SMOKING CESSATION THERAPY
     Route: 048

REACTIONS (6)
  - HYPERTENSION [None]
  - INFECTION [None]
  - PRURITUS [None]
  - RENAL ARTERY DISSECTION [None]
  - RENAL INFARCT [None]
  - VASCULITIS [None]
